FAERS Safety Report 23593558 (Version 1)
Quarter: 2024Q1

REPORT INFORMATION
  Report Type: Spontaneous
  Country: US (occurrence: US)
  Receive Date: 20240304
  Receipt Date: 20240304
  Transmission Date: 20240410
  Serious: No
  Sender: FDA-Public Use
  Company Number: US-BIOMARINAP-US-2024-156146

PATIENT

DRUGS (16)
  1. PALYNZIQ [Suspect]
     Active Substance: PEGVALIASE-PQPZ
     Indication: Phenylketonuria
     Dosage: 2.5 MILLIGRAM, QW
     Route: 058
     Dates: start: 20231206
  2. BENADRYL [Concomitant]
     Active Substance: DIPHENHYDRAMINE HYDROCHLORIDE
     Indication: Injection site swelling
     Dosage: UNK
     Dates: start: 20231214
  3. BENADRYL [Concomitant]
     Active Substance: DIPHENHYDRAMINE HYDROCHLORIDE
     Indication: Injection site pruritus
  4. BENADRYL [Concomitant]
     Active Substance: DIPHENHYDRAMINE HYDROCHLORIDE
     Indication: Injection site pain
  5. BENADRYL [Concomitant]
     Active Substance: DIPHENHYDRAMINE HYDROCHLORIDE
     Indication: Injection site erythema
  6. IBUPROFEN [Concomitant]
     Active Substance: IBUPROFEN
     Indication: Injection site swelling
     Dosage: UNK
     Dates: start: 20231214
  7. IBUPROFEN [Concomitant]
     Active Substance: IBUPROFEN
     Indication: Injection site pruritus
  8. IBUPROFEN [Concomitant]
     Active Substance: IBUPROFEN
     Indication: Injection site pain
  9. IBUPROFEN [Concomitant]
     Active Substance: IBUPROFEN
     Indication: Injection site erythema
  10. PREDNISONE [Concomitant]
     Active Substance: PREDNISONE
     Indication: Injection site swelling
     Dosage: UNK
     Dates: start: 20231214
  11. PREDNISONE [Concomitant]
     Active Substance: PREDNISONE
     Indication: Injection site pruritus
  12. PREDNISONE [Concomitant]
     Active Substance: PREDNISONE
     Indication: Injection site pain
  13. PREDNISONE [Concomitant]
     Active Substance: PREDNISONE
     Indication: Injection site erythema
  14. LORATADINE [Concomitant]
     Active Substance: LORATADINE
     Indication: Premedication
     Dosage: 10 MILLIGRAM, QD
  15. LORATADINE [Concomitant]
     Active Substance: LORATADINE
     Dosage: 20 MILLIGRAM, BID
     Dates: start: 20231128
  16. FAMOTIDINE [Concomitant]
     Active Substance: FAMOTIDINE
     Indication: Premedication
     Dosage: 40 MILLIGRAM, QD
     Dates: start: 20231128

REACTIONS (2)
  - Arthralgia [Recovering/Resolving]
  - Injection site reaction [Recovering/Resolving]

NARRATIVE: CASE EVENT DATE: 20231222
